FAERS Safety Report 14715777 (Version 1)
Quarter: 2018Q2

REPORT INFORMATION
  Report Type: Report from Study
  Country: BR (occurrence: BR)
  Receive Date: 20180404
  Receipt Date: 20180404
  Transmission Date: 20180711
  Serious: Yes (Hospitalization)
  Sender: FDA-Public Use
  Company Number: BR-UCBSA-2018013940

PATIENT
  Age: 43 Year
  Sex: Female
  Weight: 92 kg

DRUGS (1)
  1. CERTOLIZUMAB PEGOL [Suspect]
     Active Substance: CERTOLIZUMAB PEGOL
     Indication: CROHN^S DISEASE
     Dosage: UNK
     Dates: start: 201712, end: 20180126

REACTIONS (1)
  - Enteritis infectious [Recovering/Resolving]

NARRATIVE: CASE EVENT DATE: 20180308
